FAERS Safety Report 8150055-6 (Version None)
Quarter: 2012Q1

REPORT INFORMATION
  Report Type: 
  Country: None (occurrence: None)
  Receive Date: 20120219
  Receipt Date: 20120208
  Transmission Date: 20120608
  Serious: Yes (Hospitalization)
  Sender: FDA-Public Use
  Company Number: US-BRISTOL-MYERS SQUIBB COMPANY-15944168

PATIENT
  Age: 75 Year
  Sex: Male
  Weight: 82 kg

DRUGS (3)
  1. IPILIMUMAB [Suspect]
     Indication: MALIGNANT MELANOMA
     Dosage: 10MG/KG IV OVER 90 MINS ON D1 Q12 WK,NO OF COURSE-2,LAST DOSE ON 05JUL2011.INTERRUPT ON 18JUL2011
     Route: 042
     Dates: start: 20110613
  2. METOPROLOL TARTRATE [Suspect]
  3. LEUKINE [Suspect]
     Indication: MALIGNANT MELANOMA
     Dosage: LAST ADMIN. 18-JUL-2011
     Route: 058
     Dates: start: 20110613

REACTIONS (4)
  - DEHYDRATION [None]
  - ATRIAL FIBRILLATION [None]
  - HYPONATRAEMIA [None]
  - HYPOTENSION [None]
